FAERS Safety Report 4457638-5 (Version None)
Quarter: 2004Q3

REPORT INFORMATION
  Report Type: 
  Country: None (occurrence: None)
  Receive Date: 20040922
  Receipt Date: 20040903
  Transmission Date: 20050211
  Serious: Yes (Hospitalization, Other)
  Sender: FDA-Public Use
  Company Number: USA030125461

PATIENT
  Age: 53 Year
  Sex: Female
  Weight: 80 kg

DRUGS (4)
  1. HUMALOG [Suspect]
     Indication: DIABETES MELLITUS
     Dates: start: 19940101
  2. HUMULIN N [Suspect]
     Indication: DIABETES MELLITUS
     Dosage: 36 U DAY
     Dates: start: 19940101
  3. HUMULIN U [Suspect]
     Indication: DIABETES MELLITUS
  4. PROCRIT [Concomitant]

REACTIONS (12)
  - DYSPNOEA [None]
  - FEELING ABNORMAL [None]
  - HAEMODIALYSIS [None]
  - LOSS OF CONSCIOUSNESS [None]
  - LYMPHADENOPATHY [None]
  - MALAISE [None]
  - PERITONEAL DIALYSIS [None]
  - PHARMACEUTICAL PRODUCT COMPLAINT [None]
  - RED BLOOD CELL SEDIMENTATION RATE INCREASED [None]
  - RENAL FAILURE CHRONIC [None]
  - VOMITING [None]
  - WEIGHT DECREASED [None]
